FAERS Safety Report 10061671 (Version 1)
Quarter: 2014Q2

REPORT INFORMATION
  Report Type: Spontaneous
  Country: TR (occurrence: TR)
  Receive Date: 20140407
  Receipt Date: 20140407
  Transmission Date: 20141212
  Serious: Yes (Hospitalization)
  Sender: FDA-Public Use
  Company Number: TR-MYLANLABS-2014S1006820

PATIENT
  Age: 70 Year
  Sex: Male

DRUGS (2)
  1. PANAX SPP. [Suspect]
     Dosage: TWICE A DAY
     Route: 065
  2. WARFARIN [Interacting]
     Dosage: 5 MG/D
     Route: 065

REACTIONS (2)
  - International normalised ratio increased [Recovering/Resolving]
  - Drug interaction [Recovering/Resolving]
